FAERS Safety Report 16895938 (Version 1)
Quarter: 2019Q4

REPORT INFORMATION
  Report Type: Spontaneous
  Country: US (occurrence: US)
  Receive Date: 20191008
  Receipt Date: 20191008
  Transmission Date: 20200122
  Serious: No
  Sender: FDA-Public Use
  Company Number: US-PERRIGO-19US002922

PATIENT
  Sex: Female

DRUGS (1)
  1. IMIQUIMOD. [Suspect]
     Active Substance: IMIQUIMOD
     Indication: PRECANCEROUS CELLS PRESENT
     Dosage: 12.5 MG, 5 TIMES
     Route: 061
     Dates: end: 20190224

REACTIONS (15)
  - Dizziness [Not Recovered/Not Resolved]
  - Blister [Unknown]
  - Burning sensation [Recovered/Resolved]
  - Pruritus [Unknown]
  - Lymphadenopathy [Unknown]
  - Off label use [Recovered/Resolved]
  - Scab [Unknown]
  - Influenza like illness [Unknown]
  - Fatigue [Not Recovered/Not Resolved]
  - Myalgia [Unknown]
  - Head discomfort [Unknown]
  - Diarrhoea [Unknown]
  - Erythema [Unknown]
  - Dyspepsia [Unknown]
  - Skin swelling [Unknown]

NARRATIVE: CASE EVENT DATE: 201902
